FAERS Safety Report 19407420 (Version 1)
Quarter: 2021Q2

REPORT INFORMATION
  Report Type: Report from Study
  Country: JP (occurrence: JP)
  Receive Date: 20210611
  Receipt Date: 20210611
  Transmission Date: 20210717
  Serious: Yes (Other)
  Sender: FDA-Public Use
  Company Number: JP-JNJFOC-20210616515

PATIENT
  Sex: Male

DRUGS (2)
  1. ABIRATERONE ACETATE. [Suspect]
     Active Substance: ABIRATERONE ACETATE
     Indication: HORMONE-REFRACTORY PROSTATE CANCER
     Route: 048
  2. PREDNISOLONE. [Suspect]
     Active Substance: PREDNISOLONE
     Indication: HORMONE-REFRACTORY PROSTATE CANCER
     Route: 065

REACTIONS (20)
  - Hepatic function abnormal [Recovered/Resolved]
  - Loss of consciousness [Unknown]
  - Chest pain [Unknown]
  - Malaise [Unknown]
  - Angina pectoris [Unknown]
  - Oedema peripheral [Unknown]
  - Decreased appetite [Unknown]
  - Fluid retention [Unknown]
  - Liver disorder [Unknown]
  - Hypoaesthesia [Not Recovered/Not Resolved]
  - Hypertension [Unknown]
  - Bradycardia [Unknown]
  - Hepatic enzyme increased [Unknown]
  - Hypokalaemia [Unknown]
  - Drug-induced liver injury [Unknown]
  - Ventricular tachycardia [Unknown]
  - Hepatotoxicity [Recovered/Resolved]
  - Aspartate aminotransferase increased [Unknown]
  - Alanine aminotransferase increased [Unknown]
  - Nausea [Recovering/Resolving]
